FAERS Safety Report 6617855 (Version 15)
Quarter: 2013Q3

REPORT INFORMATION
  Report Type: Spontaneous
  Country: US (occurrence: US)
  Receive Date: 20080418
  Receipt Date: 20130904
  Transmission Date: 20140515
  Serious: Yes (Hospitalization, Other)
  Sender: FDA-Public Use
  Company Number: US-ROCHE-545022

PATIENT
  Age: 17 Year
  Sex: Female
  Weight: 53.5 kg

DRUGS (3)
  1. ACCUTANE [Suspect]
     Indication: ACNE
     Route: 065
     Dates: start: 19940131, end: 19950209
  2. ACCUTANE [Suspect]
     Route: 065
     Dates: start: 19951103, end: 19960702
  3. CELLCEPT [Suspect]
     Indication: PRODUCT USED FOR UNKNOWN INDICATION
     Route: 048
     Dates: start: 199806, end: 199908

REACTIONS (55)
  - Enteritis [Unknown]
  - Clostridium difficile colitis [Unknown]
  - Deep vein thrombosis [Unknown]
  - Pulmonary oedema [Unknown]
  - Pyelonephritis [Unknown]
  - Syncope [Recovered/Resolved]
  - Urinary tract infection [Unknown]
  - Diarrhoea [Unknown]
  - Nausea [Unknown]
  - Wound infection [Recovered/Resolved]
  - Inflammatory bowel disease [Unknown]
  - Glomerulonephritis [Unknown]
  - Pulmonary vasculitis [Unknown]
  - Renal failure [Unknown]
  - Large intestine polyp [Unknown]
  - Pancreatitis [Unknown]
  - Pulmonary haematoma [Unknown]
  - Pulmonary alveolar haemorrhage [Recovering/Resolving]
  - Atelectasis [Unknown]
  - Cardiac tamponade [Unknown]
  - Obliterative bronchiolitis [Not Recovered/Not Resolved]
  - Hypertension [Recovering/Resolving]
  - Oedema [Unknown]
  - Metabolic encephalopathy [Unknown]
  - Pericardial effusion [Unknown]
  - Pericarditis [Recovered/Resolved]
  - Polycythaemia vera [Unknown]
  - Vesicoureteric reflux [Not Recovered/Not Resolved]
  - Anaemia [Unknown]
  - Cerebrovascular accident [Unknown]
  - Oesophagitis [Unknown]
  - Pneumothorax [Unknown]
  - Convulsion [Recovered/Resolved]
  - Thrombophlebitis [Unknown]
  - Cholelithiasis [Recovered/Resolved]
  - Mallory-Weiss syndrome [Recovered/Resolved]
  - Varicella zoster pneumonia [Recovered/Resolved]
  - Anxiety [Unknown]
  - Irritable bowel syndrome [Unknown]
  - Blood triglycerides increased [Recovered/Resolved]
  - Gastritis [Unknown]
  - Depression [Unknown]
  - Acne [Unknown]
  - Meniscus injury [Unknown]
  - Myositis [Recovered/Resolved]
  - Drug intolerance [Recovered/Resolved]
  - Pleural effusion [Unknown]
  - Liver function test abnormal [Recovering/Resolving]
  - Stomatitis [Unknown]
  - Blood cholesterol increased [Recovering/Resolving]
  - Nausea [Recovered/Resolved]
  - Hirsutism [Unknown]
  - Hypotension [Recovered/Resolved]
  - Gingival hyperplasia [Unknown]
  - Obstructive airways disorder [Not Recovered/Not Resolved]
